FAERS Safety Report 23167071 (Version 2)
Quarter: 2024Q1

REPORT INFORMATION
  Report Type: Report from Study
  Country: CA (occurrence: CA)
  Receive Date: 20231109
  Receipt Date: 20240327
  Transmission Date: 20240409
  Serious: Yes (Other)
  Sender: FDA-Public Use
  Company Number: CA-TEVA-2023-CA-2943256

PATIENT
  Age: 37 Year
  Sex: Female

DRUGS (4)
  1. COPAXONE [Suspect]
     Active Substance: GLATIRAMER ACETATE
     Indication: Relapsing-remitting multiple sclerosis
     Dosage: TIME INTERVAL: 0.333 WEEKS: DOSAGE TEXT: STRENGTH: AND UNIT DOSE: 40 MG,
     Route: 058
     Dates: start: 20191106
  2. VITAMIN D [Concomitant]
     Active Substance: VITAMIN D NOS
     Indication: Product used for unknown indication
  3. LABETALOL [Concomitant]
     Active Substance: LABETALOL\LABETALOL HYDROCHLORIDE
     Indication: Product used for unknown indication
  4. VITAMINS [Concomitant]
     Active Substance: VITAMINS
     Indication: Product used for unknown indication

REACTIONS (33)
  - Migraine [Not Recovered/Not Resolved]
  - Feeling hot [Recovered/Resolved]
  - Cyanosis [Recovered/Resolved]
  - Muscle spasms [Recovered/Resolved]
  - Fatigue [Unknown]
  - Dizziness [Unknown]
  - Vertigo [Recovered/Resolved]
  - Headache [Unknown]
  - Blood pressure increased [Unknown]
  - Immediate post-injection reaction [Recovered/Resolved]
  - Sensory loss [Unknown]
  - Palpitations [Recovered/Resolved]
  - Injection site pruritus [Recovered/Resolved]
  - Injection site pain [Recovered/Resolved]
  - Multiple sclerosis relapse [Unknown]
  - Spinal pain [Unknown]
  - Multiple sclerosis [Unknown]
  - Back pain [Recovered/Resolved]
  - Myalgia [Unknown]
  - Drug ineffective [Unknown]
  - Sedation [Recovered/Resolved]
  - Feeling abnormal [Recovered/Resolved]
  - Hypoacusis [Unknown]
  - Paraesthesia [Unknown]
  - Caesarean section [Unknown]
  - Maternal exposure during breast feeding [Unknown]
  - Maternal exposure during pregnancy [Unknown]
  - Dyspnoea [Recovered/Resolved]
  - Non-cardiac chest pain [Recovered/Resolved]
  - Panic attack [Recovered/Resolved]
  - Paraesthesia oral [Recovered/Resolved]
  - Flushing [Unknown]
  - Palpitations [Unknown]

NARRATIVE: CASE EVENT DATE: 20220101
